FAERS Safety Report 9019909 (Version 3)
Quarter: 2013Q1

REPORT INFORMATION
  Report Type: Spontaneous
  Country: FR (occurrence: FR)
  Receive Date: 20130118
  Receipt Date: 20130205
  Transmission Date: 20140127
  Serious: Yes (Hospitalization)
  Sender: FDA-Public Use
  Company Number: FR-PFIZER INC-2013014300

PATIENT
  Age: 76 Year
  Sex: Female

DRUGS (20)
  1. EUPANTOL [Suspect]
     Dosage: 40 MG, DAILY
     Route: 048
     Dates: start: 20121121, end: 20121210
  2. ATARAX [Suspect]
     Dosage: 25 MG, DAILY
     Route: 048
     Dates: start: 20121201, end: 20121210
  3. FLUCONAZOLE [Suspect]
     Dosage: 50 MG, DAILY
     Route: 048
     Dates: start: 20121201, end: 20121209
  4. CEFTRIAXONE [Suspect]
     Indication: MENINGITIS HAEMOPHILUS
     Dosage: 10 G ( 110 MG/KG/DAY)
     Route: 042
     Dates: start: 20121121, end: 20121128
  5. NOCTAMIDE [Concomitant]
  6. LIPANTHYL [Concomitant]
  7. INEXIUM [Concomitant]
  8. COZAAR [Concomitant]
     Dosage: UNK
     Dates: start: 20121121, end: 20121128
  9. GABAPENTIN [Concomitant]
  10. SERETIDE [Concomitant]
  11. AMOXICILLIN ^MERCK^ [Concomitant]
     Dosage: UNK
     Dates: start: 20121121
  12. DEXAMETHASONE [Concomitant]
     Indication: MENINGITIS
     Dosage: UNK
     Dates: start: 20121121
  13. PARACETAMOL [Concomitant]
     Dosage: UNK
     Dates: start: 20121121, end: 20121129
  14. CRESTOR [Concomitant]
     Dosage: UNK
     Dates: start: 20121121, end: 20121128
  15. BRICANYL [Concomitant]
     Dosage: UNK
     Dates: start: 20121121
  16. ATROVENT [Concomitant]
     Dosage: UNK
     Dates: start: 20121121
  17. LOVENOX [Concomitant]
     Dosage: UNK
     Dates: start: 20121121, end: 20121128
  18. CALCIPARIN [Concomitant]
     Dosage: UNK
     Dates: start: 20121128
  19. DISCOTRINE [Concomitant]
     Dosage: UNK
     Dates: start: 20121201
  20. LOXEN [Concomitant]
     Dosage: UNK
     Dates: start: 20121203

REACTIONS (1)
  - Agranulocytosis [Recovered/Resolved]
